FAERS Safety Report 19741082 (Version 3)
Quarter: 2021Q4

REPORT INFORMATION
  Report Type: Spontaneous
  Country: US (occurrence: US)
  Receive Date: 20210824
  Receipt Date: 20211026
  Transmission Date: 20220303
  Serious: Yes (Other)
  Sender: FDA-Public Use
  Company Number: US-CHIESI USA, INC.-2021CHF03827

PATIENT
  Age: 71 Year
  Sex: Female

DRUGS (4)
  1. BRONCHITOL [Suspect]
     Active Substance: MANNITOL
     Indication: Product used for unknown indication
     Dosage: 80 MG (40 MG,10 CAPSULES TWICE DAILY)
     Route: 055
     Dates: end: 202108
  2. BRONCHITOL [Suspect]
     Active Substance: MANNITOL
     Indication: Product used for unknown indication
     Dosage: UNK
  3. PULMOZYME [Concomitant]
     Active Substance: DORNASE ALFA
     Indication: Product used for unknown indication
     Dosage: 1 IN 1 D
     Dates: start: 2019
  4. TOBRAMYCIN [Concomitant]
     Active Substance: TOBRAMYCIN
     Indication: Product used for unknown indication
     Dosage: 28 DAYS ON, 28 DAYS OFF
     Dates: start: 202012

REACTIONS (2)
  - Respiratory tract infection [Not Recovered/Not Resolved]
  - Infective pulmonary exacerbation of cystic fibrosis [Not Recovered/Not Resolved]

NARRATIVE: CASE EVENT DATE: 20210610
